FAERS Safety Report 4919597-8 (Version None)
Quarter: 2006Q1

REPORT INFORMATION
  Report Type: 
  Country: None (occurrence: None)
  Receive Date: 20060222
  Receipt Date: 20030605
  Transmission Date: 20060701
  Serious: Yes (Hospitalization, Other)
  Sender: FDA-Public Use
  Company Number: US-MERCK-0306USA00742

PATIENT
  Age: 55 Year
  Sex: Female
  Weight: 94 kg

DRUGS (1)
  1. VIOXX [Suspect]
     Indication: NECK PAIN
     Route: 048
     Dates: start: 19991029

REACTIONS (18)
  - AGITATION [None]
  - ANGINA PECTORIS [None]
  - BLOOD POTASSIUM DECREASED [None]
  - BRONCHIECTASIS [None]
  - CARDIAC DISORDER [None]
  - CHEST PAIN [None]
  - CLOSED HEAD INJURY [None]
  - CONVULSION [None]
  - CORONARY ARTERY DISEASE [None]
  - DIASTOLIC DYSFUNCTION [None]
  - DILATATION ATRIAL [None]
  - DYSPNOEA [None]
  - HEPATIC CYST [None]
  - HYPERLIPIDAEMIA [None]
  - HYPERTENSION [None]
  - PARALYSIS [None]
  - ROTATOR CUFF SYNDROME [None]
  - TRANSIENT ISCHAEMIC ATTACK [None]
